FAERS Safety Report 9885776 (Version 1)
Quarter: 2014Q1

REPORT INFORMATION
  Report Type: Spontaneous
  Country: FR (occurrence: FR)
  Receive Date: 20140210
  Receipt Date: 20140210
  Transmission Date: 20141002
  Serious: Yes (Other)
  Sender: FDA-Public Use
  Company Number: DE-TEVA-459830ISR

PATIENT
  Sex: Female

DRUGS (2)
  1. PENICILLIN V RATIOPHARM 1.5 MEGA [Suspect]
     Indication: ERYSIPELAS
     Route: 048
     Dates: start: 2013, end: 2013
  2. AUREOMYCIN CREME [Concomitant]
     Indication: NAIL BED INFECTION
     Route: 061
     Dates: start: 2013, end: 2013

REACTIONS (4)
  - Herpes zoster pharyngitis [Recovered/Resolved with Sequelae]
  - Local swelling [Not Recovered/Not Resolved]
  - Pain in extremity [Not Recovered/Not Resolved]
  - Erythema [Not Recovered/Not Resolved]
